FAERS Safety Report 4446669-7 (Version None)
Quarter: 2004Q3

REPORT INFORMATION
  Report Type: 
  Country: None (occurrence: None)
  Receive Date: 20040908
  Receipt Date: 20040817
  Transmission Date: 20050211
  Serious: Yes (Hospitalization, Other)
  Sender: FDA-Public Use
  Company Number: DE_040714003

PATIENT
  Age: 49 Year
  Sex: Female

DRUGS (3)
  1. ZYPREXA [Suspect]
     Dosage: 10 MG DAY
     Dates: start: 20000201, end: 20040721
  2. FLUOXETINE [Suspect]
     Dates: start: 20000201, end: 20040101
  3. HYPNOREX (LITIUM CARBONATE) [Concomitant]

REACTIONS (25)
  - ANAEMIA [None]
  - C-REACTIVE PROTEIN INCREASED [None]
  - DIZZINESS [None]
  - DRUG LEVEL BELOW THERAPEUTIC [None]
  - DRUG TOXICITY [None]
  - GASTROINTESTINAL HAEMORRHAGE [None]
  - HEADACHE [None]
  - HYPERTENSION [None]
  - HYPERTENSIVE CRISIS [None]
  - HYPERTONIA [None]
  - HYPOTENSION [None]
  - LEUKOCYTOSIS [None]
  - MANIA [None]
  - MARKEDLY REDUCED DIETARY INTAKE [None]
  - MENINGISM [None]
  - PAIN [None]
  - PHOTOPHOBIA [None]
  - REFUSAL OF TREATMENT BY PATIENT [None]
  - SPINAL DISORDER [None]
  - TACHYCARDIA [None]
  - TREATMENT NONCOMPLIANCE [None]
  - VISUAL DISTURBANCE [None]
  - VOMITING [None]
  - WEIGHT DECREASED [None]
  - WEIGHT INCREASED [None]
